FAERS Safety Report 4489882-5 (Version None)
Quarter: 2004Q4

REPORT INFORMATION
  Report Type: 
  Country: None (occurrence: None)
  Receive Date: 20041026
  Receipt Date: 20041014
  Transmission Date: 20050328
  Serious: Yes (Hospitalization)
  Sender: FDA-Public Use
  Company Number: 200412864GDS

PATIENT
  Age: 45 Year
  Sex: Male

DRUGS (3)
  1. ASPIRIN [Suspect]
     Indication: ACUTE MYOCARDIAL INFARCTION
     Dosage: 300 MG TOTAL DAILY
  2. STREPTOKINASE [Suspect]
     Indication: ACUTE MYOCARDIAL INFARCTION
     Dosage: 1500000 IU, TOTAL DAILY, INTRAVENOUS
     Route: 042
  3. HEPARIN [Suspect]
     Indication: ACUTE MYOCARDIAL INFARCTION
     Dosage: 5000 IU, TOTAL DAILY, INTRAVENOUS ; Q1HR, INTRAVENOUS
     Route: 042

REACTIONS (1)
  - PULMONARY ALVEOLAR HAEMORRHAGE [None]
